FAERS Safety Report 20307736 (Version 1)
Quarter: 2022Q1

REPORT INFORMATION
  Report Type: Spontaneous
  Country: GB (occurrence: GB)
  Receive Date: 20220107
  Receipt Date: 20220107
  Transmission Date: 20220424
  Serious: Yes (Other)
  Sender: FDA-Public Use
  Company Number: GB-ABBVIE-22K-167-4223335-00

PATIENT
  Sex: Female

DRUGS (2)
  1. EPILIM [Suspect]
     Active Substance: VALPROATE SODIUM
     Indication: Generalised tonic-clonic seizure
     Route: 065
     Dates: start: 1977
  2. EPILIM [Suspect]
     Active Substance: VALPROATE SODIUM
     Indication: Petit mal epilepsy

REACTIONS (4)
  - Uterine rupture [Unknown]
  - Vascular rupture [Unknown]
  - Maternal exposure during pregnancy [Unknown]
  - Live birth [Unknown]
